FAERS Safety Report 25979851 (Version 1)
Quarter: 2025Q4

REPORT INFORMATION
  Report Type: Spontaneous
  Country: US (occurrence: None)
  Receive Date: 20251029
  Receipt Date: 20251029
  Transmission Date: 20260118
  Serious: Yes (Other)
  Sender: FDA-CTU
  Company Number: None

PATIENT
  Age: 35 Year
  Sex: Female
  Weight: 70.65 kg

DRUGS (16)
  1. VYEPTI [Suspect]
     Active Substance: EPTINEZUMAB-JJMR
     Indication: Migraine
     Dates: start: 20251008
  2. AMBIEN [Suspect]
     Active Substance: ZOLPIDEM TARTRATE
  3. LYRICA [Suspect]
     Active Substance: PREGABALIN
  4. AJOVY [Suspect]
     Active Substance: FREMANEZUMAB-VFRM
  5. XCOPRI [Concomitant]
     Active Substance: CENOBAMATE
  6. LYRICA [Concomitant]
     Active Substance: PREGABALIN
  7. VITAMIN D [Concomitant]
     Active Substance: VITAMIN D NOS
  8. AMBIEN [Concomitant]
     Active Substance: ZOLPIDEM TARTRATE
  9. frovatriptan PRN [Concomitant]
  10. flexeril PRN [Concomitant]
  11. baclofen PRN [Concomitant]
  12. Ubrelvy PRN [Concomitant]
  13. BOTOX [Concomitant]
     Active Substance: ONABOTULINUMTOXINA
  14. MAGNESIUM CHLORIDE\MAGNESIUM GLUCONATE [Concomitant]
     Active Substance: MAGNESIUM CHLORIDE\MAGNESIUM GLUCONATE
  15. Methylated B vitamin [Concomitant]
  16. Turmeric-curcumin [Concomitant]

REACTIONS (10)
  - Infusion related reaction [None]
  - Bell^s palsy [None]
  - Fall [None]
  - Hypotonia [None]
  - Muscular weakness [None]
  - Circulatory collapse [None]
  - Dizziness [None]
  - Neuralgia [None]
  - Stress [None]
  - Therapy change [None]

NARRATIVE: CASE EVENT DATE: 20251008
